FAERS Safety Report 9721632 (Version 2)
Quarter: 2013Q4

REPORT INFORMATION
  Report Type: Spontaneous
  Country: US (occurrence: US)
  Receive Date: 20131201
  Receipt Date: 20131201
  Transmission Date: 20140711
  Serious: No
  Sender: FDA-Public Use
  Company Number: US-ABBVIE-13P-163-1149634-00

PATIENT
  Age: 57 Year
  Sex: Male
  Weight: 79.45 kg

DRUGS (5)
  1. ANDROGEL [Suspect]
     Indication: BLOOD TESTOSTERONE DECREASED
     Dosage: 2 PUMPS
     Route: 061
     Dates: start: 201302, end: 20130913
  2. VITAMIN D NOS [Concomitant]
     Indication: VITAMIN D DECREASED
     Route: 048
     Dates: start: 2013
  3. PROTONIX [Concomitant]
     Indication: GASTROOESOPHAGEAL REFLUX DISEASE
  4. MULTIVITAMIN [Concomitant]
     Indication: PRODUCT USED FOR UNKNOWN INDICATION
  5. CALCIUM [Concomitant]
     Indication: PRODUCT USED FOR UNKNOWN INDICATION

REACTIONS (6)
  - Blood testosterone decreased [Not Recovered/Not Resolved]
  - Therapeutic response unexpected [Not Recovered/Not Resolved]
  - Asthenia [Not Recovered/Not Resolved]
  - Erythema [Recovered/Resolved]
  - Vitamin D decreased [Not Recovered/Not Resolved]
  - Drug ineffective [Unknown]
